FAERS Safety Report 6933036-7 (Version None)
Quarter: 2010Q3

REPORT INFORMATION
  Report Type: 
  Country: None (occurrence: None)
  Receive Date: 20100818
  Receipt Date: 20100818
  Transmission Date: 20110219
  Serious: Yes (Hospitalization)
  Sender: FDA-Public Use
  Company Number: None

PATIENT
  Age: 47 Year
  Sex: Female
  Weight: 86.1834 kg

DRUGS (4)
  1. REBIF [Suspect]
     Indication: MULTIPLE SCLEROSIS
     Dosage: 1 3 TIMES A WEEK SUBCUTANEOUS
     Route: 058
     Dates: start: 20100216, end: 20100524
  2. SIMVASTATIN [Concomitant]
  3. ALEVE (CAPLET) [Concomitant]
  4. NIACIN [Concomitant]

REACTIONS (2)
  - DYSPNOEA [None]
  - PALPITATIONS [None]
